FAERS Safety Report 7346001-5 (Version None)
Quarter: 2011Q1

REPORT INFORMATION
  Report Type: 
  Country: None (occurrence: None)
  Receive Date: 20110307
  Receipt Date: 20110307
  Transmission Date: 20110831
  Serious: Yes (Other)
  Sender: FDA-Public Use
  Company Number: None

PATIENT
  Age: 5 Month
  Sex: Male
  Weight: 90.7194 kg

DRUGS (4)
  1. OXYCONTIN [Suspect]
     Indication: INTERVERTEBRAL DISC PROTRUSION
     Dosage: 3 DAILY PO
     Route: 048
     Dates: start: 20101120, end: 20110203
  2. ROXYCONTIN [Concomitant]
  3. XANAX [Concomitant]
  4. PERCOCET [Concomitant]

REACTIONS (4)
  - DYSPEPSIA [None]
  - ABDOMINAL PAIN UPPER [None]
  - PAIN [None]
  - DRUG INEFFECTIVE [None]
